FAERS Safety Report 9039042 (Version 1)
Quarter: 2013Q1

REPORT INFORMATION
  Report Type: Report from Study
  Country: US (occurrence: US)
  Receive Date: 20130129
  Receipt Date: 20130129
  Transmission Date: 20140127
  Serious: No
  Sender: FDA-Public Use
  Company Number: US-ABBOTT-12P-163-0930525-00

PATIENT
  Age: 49 Year
  Sex: Female

DRUGS (4)
  1. HUMIRA 40 MG/0.8 ML PEN [Suspect]
     Indication: CROHN^S DISEASE
  2. ENTOCORT [Concomitant]
     Indication: CROHN^S DISEASE
     Dosage: 6MG EVERY MORNING
  3. PROMETHAZINE [Concomitant]
     Indication: NAUSEA
  4. PAIN MEDICATION [Concomitant]
     Indication: PAIN

REACTIONS (9)
  - Pyrexia [Unknown]
  - Urinary tract infection [Unknown]
  - Pyrexia [Unknown]
  - Urinary tract infection [Unknown]
  - Stress [Unknown]
  - Malaise [Unknown]
  - Pain in extremity [Unknown]
  - Abasia [Unknown]
  - Gout [Unknown]
